FAERS Safety Report 8838561 (Version 1)
Quarter: 2012Q4

REPORT INFORMATION
  Report Type: 
  Country: US (occurrence: US)
  Receive Date: 20121012
  Receipt Date: 20121012
  Transmission Date: 20130627
  Serious: No
  Sender: FDA-Public Use
  Company Number: US-ASTRAZENECA-2011SE32013

PATIENT
  Age: 54 Year
  Sex: Female

DRUGS (3)
  1. SYMBICORT PMDI [Suspect]
     Dosage: UNKNOWN
     Route: 055
  2. NEXIUM [Suspect]
     Route: 048
  3. NEURONTIN [Concomitant]

REACTIONS (3)
  - Oropharyngeal pain [Unknown]
  - Throat irritation [Unknown]
  - Memory impairment [Unknown]
